FAERS Safety Report 4685469-X (Version None)
Quarter: 2005Q2

REPORT INFORMATION
  Report Type: 
  Country: None (occurrence: None)
  Receive Date: 20050608
  Receipt Date: 20050527
  Transmission Date: 20051028
  Serious: Yes (Other)
  Sender: FDA-Public Use
  Company Number: PHBS2005BE07579

PATIENT
  Sex: Female

DRUGS (3)
  1. ZOLADEX [Concomitant]
  2. PROVERA [Concomitant]
  3. ZOMETA [Suspect]
     Indication: BREAST CANCER STAGE IV
     Route: 042

REACTIONS (2)
  - DEAFNESS NEUROSENSORY [None]
  - HYPERBARIC OXYGEN THERAPY [None]
